FAERS Safety Report 18927309 (Version 1)
Quarter: 2021Q1

REPORT INFORMATION
  Report Type: Spontaneous
  Country: DE (occurrence: DE)
  Receive Date: 20210223
  Receipt Date: 20210223
  Transmission Date: 20210420
  Serious: Yes (Other)
  Sender: FDA-Public Use
  Company Number: DE-SA-2021SA061181

PATIENT
  Age: 43 Year
  Sex: Female

DRUGS (1)
  1. DUPIXENT [Suspect]
     Active Substance: DUPILUMAB
     Indication: NEURODERMATITIS
     Dosage: UNK
     Route: 065
     Dates: start: 202004, end: 202011

REACTIONS (6)
  - Infection susceptibility increased [Unknown]
  - Skin disorder [Unknown]
  - Asthenia [Recovering/Resolving]
  - Product use in unapproved indication [Unknown]
  - Conjunctivitis [Unknown]
  - Unevaluable event [Unknown]

NARRATIVE: CASE EVENT DATE: 2020
